FAERS Safety Report 17541139 (Version 1)
Quarter: 2020Q1

REPORT INFORMATION
  Report Type: Spontaneous
  Country: ES (occurrence: ES)
  Receive Date: 20200314
  Receipt Date: 20200314
  Transmission Date: 20200409
  Serious: Yes (Hospitalization, Other)
  Sender: FDA-Public Use
  Company Number: ES-AMGEN-ESPSP2020040241

PATIENT

DRUGS (6)
  1. DARBEPOETIN ALFA [Suspect]
     Active Substance: DARBEPOETIN ALFA
     Dosage: UNK MICROGRAM (CHANGED DOSE)
     Route: 065
  2. EPOETIN ALFA [Suspect]
     Active Substance: ERYTHROPOIETIN
     Dosage: UNK, INTERNATIONAL UNIT/KILOGRAM (CHANGED DOSE)
     Route: 065
  3. EPOETIN BETA [Suspect]
     Active Substance: ERYTHROPOIETIN
     Indication: NEPHROGENIC ANAEMIA
     Dosage: UNK ,INTERNATIONAL UNIT/KILOGRAM (CHANGED DOSE)
     Route: 065
  4. BLOOD, WHOLE [Concomitant]
     Active Substance: WHOLE BLOOD
     Dosage: UNK
  5. EPOETIN ALFA [Suspect]
     Active Substance: ERYTHROPOIETIN
     Indication: NEPHROGENIC ANAEMIA
     Dosage: UNK, INTERNATIONAL UNIT/KILOGRAM
     Route: 065
  6. DARBEPOETIN ALFA [Suspect]
     Active Substance: DARBEPOETIN ALFA
     Indication: NEPHROGENIC ANAEMIA
     Dosage: UNK, MICROGRAM
     Route: 065

REACTIONS (4)
  - Drug resistance [Unknown]
  - Haemoglobin abnormal [Unknown]
  - Hospitalisation [Unknown]
  - Anaemia [Unknown]
